FAERS Safety Report 16046941 (Version 3)
Quarter: 2019Q1

REPORT INFORMATION
  Report Type: Spontaneous
  Country: US (occurrence: US)
  Receive Date: 20190307
  Receipt Date: 20190325
  Transmission Date: 20190418
  Serious: No
  Sender: FDA-Public Use
  Company Number: US-PFIZER INC-2019094244

PATIENT

DRUGS (2)
  1. LYRICA [Suspect]
     Active Substance: PREGABALIN
     Indication: FIBROMYALGIA
     Dosage: 450 MG, DAILY [DIVIDED IN THREE DOSES]
  2. LYRICA [Suspect]
     Active Substance: PREGABALIN
     Dosage: 675 MG, DAILY

REACTIONS (3)
  - Overdose [Unknown]
  - Therapeutic response unexpected [Unknown]
  - Energy increased [Unknown]
